FAERS Safety Report 20972849 (Version 1)
Quarter: 2022Q2

REPORT INFORMATION
  Report Type: Spontaneous
  Country: US (occurrence: US)
  Receive Date: 20220617
  Receipt Date: 20220617
  Transmission Date: 20220720
  Serious: Yes (Other)
  Sender: FDA-Public Use
  Company Number: US-STRIDES ARCOLAB LIMITED-2022SP004904

PATIENT
  Age: 30 Year
  Sex: Female

DRUGS (6)
  1. DEXAMETHASONE [Suspect]
     Active Substance: DEXAMETHASONE
     Indication: COVID-19
     Dosage: UNK
     Route: 065
     Dates: start: 2021
  2. HEPARIN [Suspect]
     Active Substance: HEPARIN SODIUM
     Indication: Anticoagulant therapy
     Dosage: UNK
     Route: 065
     Dates: start: 2021
  3. ARGATROBAN [Suspect]
     Active Substance: ARGATROBAN
     Indication: Anticoagulant therapy
     Dosage: UNK
     Route: 065
     Dates: start: 2021
  4. REMDESIVIR [Suspect]
     Active Substance: REMDESIVIR
     Indication: COVID-19
     Dosage: UNK
     Route: 065
     Dates: start: 2021
  5. AZITHROMYCIN [Suspect]
     Active Substance: AZITHROMYCIN
     Indication: COVID-19
     Dosage: UNK
     Route: 065
     Dates: start: 2021
  6. CEFTRIAXONE [Suspect]
     Active Substance: CEFTRIAXONE
     Indication: COVID-19
     Dosage: UNK
     Route: 065
     Dates: start: 2021

REACTIONS (5)
  - Pathogen resistance [Unknown]
  - Pneumonia escherichia [Unknown]
  - Escherichia urinary tract infection [Unknown]
  - Maternal exposure during pregnancy [Unknown]
  - Off label use [Unknown]

NARRATIVE: CASE EVENT DATE: 20210101
